FAERS Safety Report 11613926 (Version 1)
Quarter: 2015Q4

REPORT INFORMATION
  Report Type: Spontaneous
  Country: FR (occurrence: FR)
  Receive Date: 20151008
  Receipt Date: 20151008
  Transmission Date: 20160304
  Serious: Yes (Hospitalization)
  Sender: FDA-Public Use
  Company Number: US-ASTRAZENECA-2015SE96280

PATIENT
  Age: 87 Year
  Sex: Female

DRUGS (10)
  1. UMULINE PROFIL [Concomitant]
     Indication: INSULIN-REQUIRING TYPE 2 DIABETES MELLITUS
  2. SEROPLEX [Suspect]
     Active Substance: ESCITALOPRAM OXALATE
     Indication: PRODUCT USED FOR UNKNOWN INDICATION
     Route: 065
  3. UMULINE PROFIL [Concomitant]
     Indication: INSULIN-REQUIRING TYPE 2 DIABETES MELLITUS
  4. INEXIUM [Concomitant]
     Active Substance: ESOMEPRAZOLE
     Route: 048
  5. KENZEN [Suspect]
     Active Substance: CANDESARTAN
     Indication: PRODUCT USED FOR UNKNOWN INDICATION
     Dosage: 8 MG, QD
     Route: 048
     Dates: start: 2011
  6. TANAKAN [Concomitant]
     Active Substance: GINKGO
     Route: 048
  7. LEVOTHYROX [Concomitant]
     Active Substance: LEVOTHYROXINE
     Dosage: 1 TABLET OF 75 MCG IN MORNING ALTERNATING WITH ONE TABLET OF 100 MCG
     Route: 048
  8. BISOPROLOL [Suspect]
     Active Substance: BISOPROLOL
     Indication: PRODUCT USED FOR UNKNOWN INDICATION
     Dosage: 5 MG, QD
     Route: 048
     Dates: start: 2011
  9. CLOPIDOGREL [Concomitant]
     Active Substance: CLOPIDOGREL BISULFATE
     Route: 048
  10. VASTEN [Concomitant]
     Active Substance: PRAVASTATIN SODIUM
     Dosage: 20 MG, QD
     Route: 048

REACTIONS (2)
  - Orthostatic hypotension [Recovered/Resolved]
  - Fall [Recovered/Resolved]

NARRATIVE: CASE EVENT DATE: 20150531
